FAERS Safety Report 24278040 (Version 1)
Quarter: 2024Q3

REPORT INFORMATION
  Report Type: Spontaneous
  Country: US (occurrence: US)
  Receive Date: 20240903
  Receipt Date: 20240903
  Transmission Date: 20241016
  Serious: Yes (Life-Threatening, Hospitalization)
  Sender: MYLAN
  Company Number: US-MYLANLABS-2024M1080393

PATIENT
  Age: 33 Year
  Sex: Male

DRUGS (10)
  1. FUROSEMIDE [Suspect]
     Active Substance: FUROSEMIDE
     Indication: Pulmonary hypertension
     Dosage: 100 MILLIGRAM, QD
     Route: 065
  2. SILDENAFIL [Suspect]
     Active Substance: SILDENAFIL
     Indication: Pulmonary hypertension
     Dosage: 20 MILLIGRAM, TID, THREE TIMES DAILY
     Route: 065
  3. BUDESONIDE\FORMOTEROL FUMARATE [Suspect]
     Active Substance: BUDESONIDE\FORMOTEROL FUMARATE
     Indication: Obstructive airways disorder
     Dosage: UNK
     Route: 065
  4. EPOPROSTENOL [Suspect]
     Active Substance: EPOPROSTENOL
     Indication: Pulmonary hypertension
     Dosage: UNK, VIA NEBULISER
     Route: 065
  5. TREPROSTINIL [Suspect]
     Active Substance: TREPROSTINIL
     Indication: Pulmonary hypertension
     Dosage: UNK, QID, NEBULIZED INHALED TREPROSTINIL 9 BREATHS (54?MCG) 4 TIMES DAILY [SIC]
     Route: 055
  6. TREPROSTINIL [Suspect]
     Active Substance: TREPROSTINIL
     Indication: Pulmonary hypertension
     Dosage: UNK, INHALED TREPROSTINIL DRY POWDER INHALER
     Route: 055
  7. ALBUTEROL\IPRATROPIUM [Suspect]
     Active Substance: ALBUTEROL\IPRATROPIUM
     Indication: Obstructive airways disorder
     Dosage: UNK
     Route: 065
  8. HELIOX [Suspect]
     Active Substance: OXYGEN
     Indication: Obstructive airways disorder
     Dosage: UNK
     Route: 065
  9. ILOPROST [Suspect]
     Active Substance: ILOPROST
     Indication: Pulmonary hypertension
     Dosage: 2.5 MICROGRAM, 9XD, NEBULIZED; NINE TIMES DAILY
     Route: 055
  10. ILOPROST [Suspect]
     Active Substance: ILOPROST
     Dosage: 5 MICROGRAM, NEBULISED; NINE TIMES DAILY
     Route: 055

REACTIONS (11)
  - Bronchospasm [Recovering/Resolving]
  - Acute respiratory failure [Recovering/Resolving]
  - Cardio-respiratory arrest [Recovering/Resolving]
  - Obstructive airways disorder [Recovering/Resolving]
  - Pneumomediastinum [Recovering/Resolving]
  - Subcutaneous emphysema [Recovering/Resolving]
  - Pneumothorax [Recovering/Resolving]
  - Cardiac tamponade [Recovering/Resolving]
  - Drug ineffective [Unknown]
  - Treatment noncompliance [Recovering/Resolving]
  - Off label use [Unknown]
